FAERS Safety Report 4645463-1 (Version None)
Quarter: 2005Q2

REPORT INFORMATION
  Report Type: 
  Country: None (occurrence: None)
  Receive Date: 20050331
  Receipt Date: 20050218
  Transmission Date: 20051028
  Serious: Yes (Hospitalization)
  Sender: FDA-Public Use
  Company Number: 05P-163-0291325-00

PATIENT
  Age: 52 Year
  Sex: Female
  Weight: 72.5755 kg

DRUGS (10)
  1. HUMIRA [Suspect]
     Indication: RHEUMATOID ARTHRITIS
     Dosage: 40 MG, 1 IN 2 WK, SUBCUTANEOUS
     Route: 058
     Dates: start: 20040901
  2. NICOTINIC ACID [Suspect]
     Indication: CARDIAC DISORDER
     Dosage: 500 MG, 1 IN 1 D, PER ORAL
     Route: 048
     Dates: start: 20040203, end: 20050101
  3. ASPIRIN [Concomitant]
  4. CLOPIDOGREL BISULFATE [Concomitant]
  5. ATORVASTATIN [Concomitant]
  6. METOPROLOL [Concomitant]
  7. DIAVAN [Concomitant]
  8. CALCIUM SUPPLEMENT [Concomitant]
  9. MULTI-VITAMINS [Concomitant]
  10. CELECOXIB [Concomitant]

REACTIONS (3)
  - HOT FLUSH [None]
  - MYOCARDIAL INFARCTION [None]
  - SINUSITIS [None]
